FAERS Safety Report 25343496 (Version 2)
Quarter: 2025Q4

REPORT INFORMATION
  Report Type: Report from Study
  Country: CA (occurrence: CA)
  Receive Date: 20250521
  Receipt Date: 20251106
  Transmission Date: 20260118
  Serious: Yes (Other)
  Sender: JOHNSON AND JOHNSON
  Company Number: CA-JNJFOC-20250433062

PATIENT
  Age: 56 Year
  Sex: Female
  Weight: 69 kg

DRUGS (2)
  1. REMICADE [Suspect]
     Active Substance: INFLIXIMAB
     Indication: Crohn^s disease
     Dosage: 7 NUMBER OF UNITS INVOLVED IN THIS COMPLAINT
     Route: 041
     Dates: start: 20240602
  2. REMICADE [Suspect]
     Active Substance: INFLIXIMAB
     Dosage: 7 NUMBER OF UNITS INVOLVED IN THIS COMPLAINT
     Route: 041

REACTIONS (2)
  - Crohn^s disease [Unknown]
  - Lymphoma [Unknown]
